FAERS Safety Report 9569386 (Version 1)
Quarter: 2013Q3

REPORT INFORMATION
  Report Type: Spontaneous
  Country: US (occurrence: US)
  Receive Date: 20130930
  Receipt Date: 20130930
  Transmission Date: 20140515
  Serious: No
  Sender: FDA-Public Use
  Company Number: US-AMGEN-USASP2013058226

PATIENT
  Age: 58 Year
  Sex: Female
  Weight: 74.83 kg

DRUGS (10)
  1. ENBREL [Suspect]
     Indication: PRODUCT USED FOR UNKNOWN INDICATION
     Dosage: 50 MG, QWK
     Route: 058
  2. SOMA [Concomitant]
     Dosage: 350 MG, UNK
  3. PREMARIN [Concomitant]
     Dosage: 0.45 MG, UNK
  4. AMLODIPINE [Concomitant]
     Dosage: 5 MG, UNK
  5. PREDNISONE [Concomitant]
     Dosage: 2.5 MG, UNK
  6. INDAPAMIDE [Concomitant]
     Dosage: 1.25 MG, UNK
  7. OXYCODONE AND ASPIRIN              /00953301/ [Concomitant]
     Dosage: UNK
  8. VITAMIN D                          /00107901/ [Concomitant]
     Dosage: 2000 UNIT, UNK
  9. MULTIVITAMINS, PLAIN [Concomitant]
     Dosage: UNK
  10. CALCIUM [Concomitant]
     Dosage: UNK

REACTIONS (2)
  - Skin exfoliation [Unknown]
  - Rash [Unknown]
